FAERS Safety Report 9847351 (Version 1)
Quarter: 2014Q1

REPORT INFORMATION
  Report Type: Report from Study
  Country: DE (occurrence: DE)
  Receive Date: 20140127
  Receipt Date: 20140127
  Transmission Date: 20141002
  Serious: Yes (Hospitalization)
  Sender: FDA-Public Use
  Company Number: DE-ABBVIE-14P-062-1192965-00

PATIENT
  Age: 54 Year
  Sex: Male
  Weight: 99 kg

DRUGS (5)
  1. HUMIRA [Suspect]
     Indication: CROHN^S DISEASE
     Route: 058
     Dates: start: 20121114, end: 201306
  2. HUMIRA [Suspect]
     Route: 058
     Dates: start: 201306
  3. DOCITON [Concomitant]
     Indication: PRODUCT USED FOR UNKNOWN INDICATION
  4. PANTOZOL [Concomitant]
     Indication: PRODUCT USED FOR UNKNOWN INDICATION
  5. IDEOS [Concomitant]
     Indication: PRODUCT USED FOR UNKNOWN INDICATION
     Dosage: 1-0-1-0

REACTIONS (3)
  - Varices oesophageal [Recovered/Resolved]
  - Cough [Unknown]
  - Iron deficiency [Unknown]
